FAERS Safety Report 15428118 (Version 1)
Quarter: 2018Q3

REPORT INFORMATION
  Report Type: Report from Study
  Country: JP (occurrence: JP)
  Receive Date: 20180926
  Receipt Date: 20180926
  Transmission Date: 20181010
  Serious: Yes (Death, Hospitalization, Other)
  Sender: FDA-Public Use
  Company Number: JP-ALXN-A201801313AA

PATIENT
  Age: 24 Year
  Sex: Male
  Weight: 61 kg

DRUGS (8)
  1. PREDONINE [Suspect]
     Active Substance: PREDNISOLONE
     Dosage: 7.5 MG, DAILY
     Route: 048
     Dates: end: 20180128
  2. PREDONINE [Suspect]
     Active Substance: PREDNISOLONE
     Indication: PAROXYSMAL NOCTURNAL HAEMOGLOBINURIA
     Dosage: 30 MG, DAILY
     Route: 065
     Dates: start: 20160113
  3. INAVIR                             /07146202/ [Concomitant]
     Active Substance: LANINAMIVIR
     Indication: PRODUCT USED FOR UNKNOWN INDICATION
     Dosage: 2 DF, SINGLE
     Dates: start: 20180128, end: 20180128
  4. SOLIRIS [Suspect]
     Active Substance: ECULIZUMAB
     Indication: PAROXYSMAL NOCTURNAL HAEMOGLOBINURIA
     Dosage: 600 MG, QW
     Route: 042
     Dates: start: 20160115, end: 20160205
  5. NEORAL [Suspect]
     Active Substance: CYCLOSPORINE
     Indication: PAROXYSMAL NOCTURNAL HAEMOGLOBINURIA
     Dosage: 150 MG, DAILY
     Route: 065
     Dates: start: 20151225, end: 20170404
  6. NEORAL [Suspect]
     Active Substance: CYCLOSPORINE
     Dosage: 125 MG, DAILY
     Route: 048
     Dates: start: 20170405, end: 20180128
  7. SOLIRIS [Suspect]
     Active Substance: ECULIZUMAB
     Dosage: 900 MG, Q2W
     Route: 042
     Dates: start: 20160212, end: 20180124
  8. GASTER [Concomitant]
     Active Substance: FAMOTIDINE
     Indication: PRODUCT USED FOR UNKNOWN INDICATION
     Dosage: 10 MG, DAILY
     Route: 065
     Dates: end: 20180128

REACTIONS (3)
  - Meningococcal sepsis [Fatal]
  - Septic shock [Fatal]
  - Inappropriate schedule of drug administration [Unknown]

NARRATIVE: CASE EVENT DATE: 20170422
